FAERS Safety Report 9648638 (Version 1)
Quarter: 2013Q4

REPORT INFORMATION
  Report Type: Spontaneous
  Country: US (occurrence: US)
  Receive Date: 20131028
  Receipt Date: 20131028
  Transmission Date: 20140711
  Serious: No
  Sender: FDA-Public Use
  Company Number: US-PFIZER INC-2013306309

PATIENT
  Age: 57 Year
  Sex: Female

DRUGS (7)
  1. CELECOXIB [Suspect]
     Dosage: UNK
  2. MORPHINE SULFATE [Suspect]
     Dosage: UNK
  3. OXYCODONE HYDROCHLORIDE [Suspect]
     Dosage: UNK
  4. NEOSPORIN [Suspect]
     Dosage: UNK
  5. CODEINE [Suspect]
     Dosage: UNK
  6. DARVOCET [Suspect]
     Dosage: UNK
  7. ACETAMINOPHEN [Suspect]
     Dosage: UNK

REACTIONS (1)
  - Drug hypersensitivity [Unknown]
